FAERS Safety Report 12467261 (Version 1)
Quarter: 2016Q2

REPORT INFORMATION
  Report Type: Spontaneous
  Country: CH (occurrence: CH)
  Receive Date: 20160615
  Receipt Date: 20160615
  Transmission Date: 20160815
  Serious: Yes (Hospitalization)
  Sender: FDA-Public Use
  Company Number: CH-ROCHE-1775294

PATIENT
  Age: 76 Year
  Sex: Female
  Weight: 57 kg

DRUGS (8)
  1. BECOZYM [Concomitant]
     Active Substance: VITAMINS
  2. SELIPRAN [Concomitant]
     Active Substance: PRAVASTATIN SODIUM
  3. ZYDELIG [Suspect]
     Active Substance: IDELALISIB
     Indication: CHRONIC LYMPHOCYTIC LEUKAEMIA
     Route: 065
     Dates: start: 201511, end: 201604
  4. VOTUM (SWITZERLAND) [Concomitant]
  5. MABTHERA [Suspect]
     Active Substance: RITUXIMAB
     Indication: CHRONIC LYMPHOCYTIC LEUKAEMIA
     Route: 042
     Dates: start: 201511, end: 201604
  6. VITAMIN D3 [Concomitant]
     Active Substance: CHOLECALCIFEROL
  7. TRESIBA [Concomitant]
     Active Substance: INSULIN DEGLUDEC
  8. GALVUMET [Concomitant]
     Active Substance: METFORMIN HYDROCHLORIDE\VILDAGLIPTIN

REACTIONS (3)
  - Pneumocystis jirovecii pneumonia [Recovering/Resolving]
  - Cytomegalovirus test positive [Unknown]
  - Off label use [Unknown]

NARRATIVE: CASE EVENT DATE: 20160428
